FAERS Safety Report 7376541-4 (Version None)
Quarter: 2011Q1

REPORT INFORMATION
  Report Type: 
  Country: None (occurrence: None)
  Receive Date: 20110325
  Receipt Date: 20110314
  Transmission Date: 20110831
  Serious: Yes (Death, Hospitalization, Other)
  Sender: FDA-Public Use
  Company Number: US-CELGENEUS-163-21880-11010597

PATIENT
  Sex: Female

DRUGS (23)
  1. REVLIMID [Suspect]
     Indication: MULTIPLE MYELOMA
     Dosage: 10 MILLIGRAM
     Route: 048
     Dates: start: 20101001, end: 20101201
  2. LASIX [Concomitant]
     Dosage: 20 MILLIGRAM
     Route: 048
     Dates: start: 20100901, end: 20100101
  3. CYANOCOBALAMIN [Concomitant]
     Dosage: 1 MILLIGRAM
     Route: 048
  4. REVLIMID [Suspect]
     Indication: AMYLOIDOSIS
  5. PREMPRO [Concomitant]
     Route: 048
     Dates: start: 19900101
  6. SYNTHROID [Concomitant]
     Dosage: 25 MICROGRAM
     Route: 048
  7. DOXYCYCLINE [Concomitant]
     Route: 065
  8. PROTONIX [Concomitant]
     Dosage: 40 MILLIGRAM
     Route: 048
  9. ACETAMINOPHEN [Concomitant]
     Route: 065
  10. ASPIRIN [Concomitant]
     Indication: ATRIAL FIBRILLATION
     Dosage: 325 MILLIGRAM
     Route: 048
     Dates: start: 20101030
  11. FOLATE [Concomitant]
     Dosage: 2 MILLIGRAM
     Route: 048
  12. ORAVIG [Concomitant]
     Dosage: 50 MILLIGRAM
     Route: 002
  13. ASPIRIN [Concomitant]
     Dosage: 81 MILLIGRAM
     Route: 048
  14. CARAFATE [Concomitant]
     Route: 048
     Dates: start: 20100901, end: 20100101
  15. LASIX [Concomitant]
     Dosage: 40 MILLIGRAM
     Route: 051
     Dates: start: 20101101
  16. KAPIDEX [Concomitant]
     Dosage: 60 MILLIGRAM
     Route: 048
     Dates: start: 20100901, end: 20100101
  17. MICRO-K [Concomitant]
     Dosage: 10 MILLIEQUIVALENTS
     Route: 048
  18. VANCOMYCIN [Concomitant]
     Route: 065
  19. AMIODARONE HCL [Concomitant]
     Dosage: 200 MILLIGRAM
     Route: 048
     Dates: start: 20100101, end: 20100101
  20. POTASSIUM CHLORIDE [Concomitant]
     Route: 048
     Dates: start: 20100901, end: 20100101
  21. ZOSYN [Concomitant]
     Route: 065
  22. DEXAMETHASONE [Concomitant]
     Route: 065
     Dates: end: 20101025
  23. SALINE [Concomitant]
     Route: 051
     Dates: end: 20101101

REACTIONS (9)
  - CELLULITIS [None]
  - GASTROINTESTINAL HAEMORRHAGE [None]
  - PSEUDOMONAL SEPSIS [None]
  - NEUTROPENIA [None]
  - ATRIAL FIBRILLATION [None]
  - HYPOMANIA [None]
  - PNEUMONIA [None]
  - CARDIAC FAILURE CONGESTIVE [None]
  - ANAEMIA [None]
